FAERS Safety Report 7542557-8 (Version None)
Quarter: 2011Q2

REPORT INFORMATION
  Report Type: 
  Country: None (occurrence: None)
  Receive Date: 20110606
  Receipt Date: 20110524
  Transmission Date: 20111010
  Serious: Yes (Other)
  Sender: FDA-Public Use
  Company Number: DSA_46814_2011

PATIENT
  Sex: Female

DRUGS (1)
  1. BUPROPION HYDROCHLORIDE [Suspect]
     Indication: PRODUCT USED FOR UNKNOWN INDICATION
     Dosage: (3.6 G 1X, NOT THE PRESCRIBED AMOUNT ORAL)
     Route: 048

REACTIONS (8)
  - ELECTROCARDIOGRAM ST SEGMENT ELEVATION [None]
  - PALPITATIONS [None]
  - DIZZINESS [None]
  - SINUS TACHYCARDIA [None]
  - OVERDOSE [None]
  - GRAND MAL CONVULSION [None]
  - ELECTROCARDIOGRAM ST SEGMENT DEPRESSION [None]
  - VOMITING [None]
